FAERS Safety Report 9684733 (Version 1)
Quarter: 2013Q4

REPORT INFORMATION
  Report Type: Spontaneous
  Country: US (occurrence: US)
  Receive Date: 20131112
  Receipt Date: 20131112
  Transmission Date: 20140711
  Serious: Yes (Hospitalization)
  Sender: FDA-Public Use
  Company Number: US-B.I. PHARMACEUTICALS,INC./RIDGEFIELD-2013-BI-36685BP

PATIENT
  Age: 9 Decade
  Sex: Female

DRUGS (3)
  1. SPIRIVA [Suspect]
     Indication: CHRONIC OBSTRUCTIVE PULMONARY DISEASE
     Dosage: 18 MCG
     Route: 055
     Dates: start: 2010, end: 201309
  2. ADVAIR [Concomitant]
     Dosage: FORMULATION INHALATION AEROSOL
     Route: 055
  3. SINGULAIR [Concomitant]
     Dosage: FORMULATION INHALATION AEROSOL
     Route: 055

REACTIONS (2)
  - Urinary retention [Recovered/Resolved]
  - Urinary tract infection bacterial [Recovered/Resolved]
